FAERS Safety Report 15953178 (Version 2)
Quarter: 2019Q3

REPORT INFORMATION
  Report Type: Spontaneous
  Country: US (occurrence: US)
  Receive Date: 20190212
  Receipt Date: 20190722
  Transmission Date: 20191004
  Serious: Yes (Other)
  Sender: FDA-Public Use
  Company Number: US-009507513-1902USA001620

PATIENT
  Sex: Female

DRUGS (1)
  1. PRINIVIL [Suspect]
     Active Substance: LISINOPRIL
     Dosage: UNK

REACTIONS (3)
  - Angioedema [Unknown]
  - Drug hypersensitivity [Unknown]
  - Swelling face [Unknown]
